FAERS Safety Report 4396176-5 (Version None)
Quarter: 2004Q3

REPORT INFORMATION
  Report Type: 
  Country: None (occurrence: None)
  Receive Date: 20040709
  Receipt Date: 20040625
  Transmission Date: 20050211
  Serious: Yes (Disabling)
  Sender: FDA-Public Use
  Company Number: 139264USA

PATIENT
  Age: 68 Year
  Sex: Female
  Weight: 124.7392 kg

DRUGS (5)
  1. NABUMETONE [Suspect]
     Indication: ARTHRITIS
     Dosage: 750 MILLIGRAM BID ORAL
     Route: 048
     Dates: start: 20040609, end: 20040614
  2. AMARYL [Concomitant]
  3. TEVETEN [Concomitant]
  4. ALTACE [Concomitant]
  5. WATER PILL [Concomitant]

REACTIONS (2)
  - HYPOACUSIS [None]
  - TINNITUS [None]
